FAERS Safety Report 20796617 (Version 2)
Quarter: 2022Q3

REPORT INFORMATION
  Report Type: Spontaneous
  Country: ES (occurrence: ES)
  Receive Date: 20220506
  Receipt Date: 20220715
  Transmission Date: 20221026
  Serious: Yes (Death, Hospitalization, Other)
  Sender: FDA-Public Use
  Company Number: ES-SA-SAC20220505000112

PATIENT
  Age: 66 Year
  Sex: Female

DRUGS (2)
  1. LIBTAYO [Suspect]
     Active Substance: CEMIPLIMAB-RWLC
     Indication: Cervix cancer metastatic
     Dosage: 350 MG, Q3W
     Dates: start: 20211230, end: 20220304
  2. LIBTAYO [Suspect]
     Active Substance: CEMIPLIMAB-RWLC
     Dosage: UNK
     Dates: start: 20220324

REACTIONS (15)
  - Disease progression [Fatal]
  - Ileal ulcer [Unknown]
  - Intestinal obstruction [Unknown]
  - Metastases to peritoneum [Unknown]
  - Large intestinal ulcer [Unknown]
  - Food intolerance [Unknown]
  - Enteritis [Unknown]
  - Gastrointestinal inflammation [Unknown]
  - Apoptosis [Unknown]
  - Small intestinal obstruction [Unknown]
  - Immune-mediated enterocolitis [Unknown]
  - Vomiting [Unknown]
  - Nausea [Unknown]
  - Colitis [Unknown]
  - Chronic gastritis [Unknown]

NARRATIVE: CASE EVENT DATE: 20220405
